FAERS Safety Report 5645345-2 (Version None)
Quarter: 2008Q1

REPORT INFORMATION
  Report Type: 
  Country: None (occurrence: None)
  Receive Date: 20080229
  Receipt Date: 20080225
  Transmission Date: 20080703
  Serious: Yes (Death)
  Sender: FDA-Public Use
  Company Number: B0509625A

PATIENT
  Age: 65 Year
  Sex: Male
  Weight: 73 kg

DRUGS (27)
  1. ALKERAN [Suspect]
     Indication: STEM CELL TRANSPLANT
     Dosage: 140MGM2 PER DAY
     Route: 042
     Dates: start: 20070521, end: 20070521
  2. FLUDARA [Suspect]
     Indication: STEM CELL TRANSPLANT
     Dosage: 43MG PER DAY
     Route: 042
     Dates: start: 20070516, end: 20070520
  3. SOLU-MEDROL [Suspect]
     Indication: IMMUNOSUPPRESSANT DRUG THERAPY
     Route: 042
     Dates: start: 20070717, end: 20070719
  4. PREDONINE [Suspect]
     Indication: IMMUNOSUPPRESSANT DRUG THERAPY
     Dosage: 120MG PER DAY
     Route: 065
     Dates: start: 20070720, end: 20070809
  5. METHOTREXATE [Suspect]
     Indication: IMMUNOSUPPRESSANT DRUG THERAPY
     Dosage: 17MG PER DAY
     Route: 065
     Dates: start: 20070524, end: 20070524
  6. METHOTREXATE [Suspect]
     Dosage: 12MG PER DAY
     Route: 065
     Dates: start: 20070526, end: 20070526
  7. METHOTREXATE [Suspect]
     Dosage: 12MG PER DAY
     Route: 065
     Dates: start: 20070529, end: 20070529
  8. NEUTROGIN [Concomitant]
     Dosage: 350MCG PER DAY
     Dates: start: 20070528, end: 20070608
  9. CYCLOSPORINE [Concomitant]
     Indication: IMMUNOSUPPRESSANT DRUG THERAPY
     Dosage: 140MG PER DAY
     Route: 065
     Dates: start: 20070522, end: 20070719
  10. GASTER D [Concomitant]
     Route: 048
     Dates: start: 20070419, end: 20070721
  11. ITRIZOLE [Concomitant]
     Route: 048
     Dates: start: 20070419, end: 20070513
  12. ITRIZOLE [Concomitant]
     Route: 048
     Dates: start: 20070514, end: 20070720
  13. BAKTAR [Concomitant]
     Route: 048
     Dates: start: 20070419, end: 20070521
  14. ZOVIRAX [Concomitant]
     Route: 048
     Dates: start: 20070516, end: 20070627
  15. ZOVIRAX [Concomitant]
     Route: 048
     Dates: start: 20070628, end: 20070718
  16. URSO 250 [Concomitant]
     Route: 048
     Dates: start: 20070514, end: 20070808
  17. POLYMYXIN B SULFATE [Concomitant]
     Route: 048
     Dates: start: 20070514, end: 20070530
  18. BAKTAR [Concomitant]
     Route: 048
     Dates: start: 20070609, end: 20070808
  19. MAXIPIME [Concomitant]
     Route: 042
     Dates: start: 20070531, end: 20070611
  20. MAXIPIME [Concomitant]
     Route: 042
     Dates: start: 20070717, end: 20070801
  21. BANAN [Concomitant]
     Route: 048
     Dates: start: 20070707, end: 20070711
  22. DIFLUCAN [Concomitant]
     Route: 048
     Dates: start: 20070721, end: 20070808
  23. ALLOID G [Concomitant]
     Route: 048
     Dates: start: 20070721, end: 20070808
  24. UNKNOWN MEDICATION [Concomitant]
     Dates: start: 20070719, end: 20070728
  25. MINOMYCIN [Concomitant]
     Route: 042
     Dates: start: 20070731, end: 20070801
  26. AZACTAM [Concomitant]
     Dates: start: 20070801, end: 20070802
  27. TIENAM [Concomitant]
     Dates: start: 20070803, end: 20070808

REACTIONS (4)
  - CRYPTOGENIC ORGANISING PNEUMONIA [None]
  - DYSPNOEA [None]
  - GRAFT VERSUS HOST DISEASE IN LUNG [None]
  - INTERSTITIAL LUNG DISEASE [None]
